FAERS Safety Report 10313851 (Version 1)
Quarter: 2014Q3

REPORT INFORMATION
  Report Type: Spontaneous
  Country: US (occurrence: None)
  Receive Date: 20140717
  Receipt Date: 20140717
  Transmission Date: 20150326
  Serious: No
  Sender: FDA-Public Use
  Company Number: None

PATIENT

DRUGS (1)
  1. AMMONIUM LACTATE CREAM (BASE) 12% [Suspect]
     Active Substance: AMMONIUM LACTATE

REACTIONS (1)
  - Product quality issue [None]

NARRATIVE: CASE EVENT DATE: 20140701
